FAERS Safety Report 5518183-9 (Version None)
Quarter: 2007Q4

REPORT INFORMATION
  Report Type: 
  Country: None (occurrence: None)
  Receive Date: 20071113
  Receipt Date: 20071113
  Transmission Date: 20080405
  Serious: Yes (Hospitalization)
  Sender: FDA-Public Use
  Company Number: None

PATIENT
  Age: 27 Year
  Sex: Male
  Weight: 90 kg

DRUGS (1)
  1. KLONOPIN [Suspect]
     Indication: BIPOLAR DISORDER
     Dosage: CLONAZEPAM 2MG  BID  PO
     Route: 048
     Dates: start: 20071001, end: 20071023

REACTIONS (1)
  - SUICIDE ATTEMPT [None]
